FAERS Safety Report 5951895-1 (Version None)
Quarter: 2008Q4

REPORT INFORMATION
  Report Type: 
  Country: None (occurrence: None)
  Receive Date: 20081113
  Receipt Date: 20081103
  Transmission Date: 20090506
  Serious: Yes (Hospitalization)
  Sender: FDA-Public Use
  Company Number: FR-BAXTER-2008BH011944

PATIENT
  Age: 64 Year
  Sex: Male

DRUGS (5)
  1. ENDOXAN BAXTER [Suspect]
     Indication: B-CELL LYMPHOMA
     Dosage: DOSE UNIT:UNKNOWN
     Route: 042
     Dates: start: 20070101, end: 20070501
  2. MABTHERA [Suspect]
     Indication: B-CELL LYMPHOMA
     Dosage: DOSE UNIT:UNKNOWN
     Route: 042
     Dates: start: 20070101, end: 20080801
  3. ADRIAMYCIN PFS [Suspect]
     Indication: B-CELL LYMPHOMA
     Dosage: DOSE UNIT:UNKNOWN
     Route: 042
     Dates: start: 20070101, end: 20070501
  4. ONCOVIN [Suspect]
     Indication: B-CELL LYMPHOMA
     Dosage: DOSE UNIT:UNKNOWN
     Route: 042
     Dates: start: 20070101, end: 20070501
  5. SOLUPRED [Suspect]
     Indication: B-CELL LYMPHOMA
     Dosage: DOSE UNIT:UNKNOWN
     Route: 048
     Dates: start: 20070101, end: 20070501

REACTIONS (2)
  - GRANULOMATOUS LIVER DISEASE [None]
  - SARCOIDOSIS [None]
